FAERS Safety Report 18742382 (Version 2)
Quarter: 2021Q1

REPORT INFORMATION
  Report Type: Report from Study
  Country: US (occurrence: US)
  Receive Date: 20210114
  Receipt Date: 20210210
  Transmission Date: 20210419
  Serious: Yes (Other)
  Sender: FDA-Public Use
  Company Number: US-JNJFOC-20210107345

PATIENT
  Age: 53 Year
  Sex: Female

DRUGS (2)
  1. EPOPROSTENOL SODIUM. [Suspect]
     Active Substance: EPOPROSTENOL SODIUM
     Route: 042
  2. EPOPROSTENOL SODIUM. [Suspect]
     Active Substance: EPOPROSTENOL SODIUM
     Indication: PULMONARY ARTERIAL HYPERTENSION
     Route: 042

REACTIONS (11)
  - White blood cell count increased [Unknown]
  - Headache [Recovering/Resolving]
  - Pain in jaw [Unknown]
  - Flushing [Recovering/Resolving]
  - Pleural effusion [Unknown]
  - Chest discomfort [Recovering/Resolving]
  - Abdominal discomfort [Recovering/Resolving]
  - Accidental overdose [Recovering/Resolving]
  - Hypoxia [Unknown]
  - Diarrhoea [Unknown]
  - Sinus congestion [Unknown]

NARRATIVE: CASE EVENT DATE: 202012
